FAERS Safety Report 7020337-X (Version None)
Quarter: 2010Q3

REPORT INFORMATION
  Report Type: 
  Country: None (occurrence: None)
  Receive Date: 20100929
  Receipt Date: 20100922
  Transmission Date: 20110219
  Serious: Yes (Other)
  Sender: FDA-Public Use
  Company Number: US-BAYER-201020595BCC

PATIENT
  Sex: Female

DRUGS (1)
  1. ALKA-SELTZER [Suspect]
     Indication: PRODUCT USED FOR UNKNOWN INDICATION
     Dosage: COUNT BOTTLE UNKNOWN
     Route: 048

REACTIONS (1)
  - DRUG DEPENDENCE [None]
